FAERS Safety Report 7632616-3 (Version None)
Quarter: 2011Q3

REPORT INFORMATION
  Report Type: 
  Country: None (occurrence: None)
  Receive Date: 20110725
  Receipt Date: 20101029
  Transmission Date: 20111222
  Serious: No
  Sender: FDA-Public Use
  Company Number: US-BRISTOL-MYERS SQUIBB COMPANY-15360050

PATIENT
  Age: 53 Year
  Sex: Female
  Weight: 91 kg

DRUGS (14)
  1. TRILIPIX [Concomitant]
  2. VITAMIN D [Concomitant]
     Dosage: 1 DF:50000 UNITS
  3. LACTAID [Concomitant]
     Dosage: FOR:PILLS
  4. HYDROCODONE BITARTRATE [Concomitant]
     Dosage: HYDROCODONE XR
  5. OXYCODONE HCL [Concomitant]
  6. CLONIDINE [Concomitant]
  7. COUMADIN [Suspect]
     Dates: end: 20100101
  8. LOVENOX [Concomitant]
  9. CREON [Concomitant]
  10. JANUVIA [Concomitant]
  11. XANAX [Concomitant]
  12. METFORMIN HCL [Concomitant]
     Dosage: ABOUT TWICE A WEEK
  13. ALLEGRA [Concomitant]
  14. CIMETIDINE [Concomitant]

REACTIONS (1)
  - INTERNATIONAL NORMALISED RATIO INCREASED [None]
